FAERS Safety Report 25359766 (Version 1)
Quarter: 2025Q2

REPORT INFORMATION
  Report Type: Spontaneous
  Country: GB (occurrence: GB)
  Receive Date: 20250526
  Receipt Date: 20250526
  Transmission Date: 20250716
  Serious: Yes (Hospitalization, Disabling, Other)
  Sender: ELI LILLY AND COMPANY
  Company Number: None

PATIENT
  Age: 55 Year
  Sex: Male

DRUGS (2)
  1. TIRZEPATIDE [Suspect]
     Active Substance: TIRZEPATIDE
     Indication: Weight control
     Dosage: 2.5 MG, WEEKLY (1/W)
     Route: 065
  2. ATORVASTATIN [Concomitant]
     Active Substance: ATORVASTATIN
     Indication: Type IIa hyperlipidaemia
     Dates: start: 20220121

REACTIONS (4)
  - Hypophosphataemia [Recovering/Resolving]
  - Generalised tonic-clonic seizure [Recovered/Resolved]
  - Dehydration [Unknown]
  - Fluid intake reduced [Unknown]

NARRATIVE: CASE EVENT DATE: 20250513
